FAERS Safety Report 8354716-5 (Version None)
Quarter: 2012Q2

REPORT INFORMATION
  Report Type: 
  Country: None (occurrence: None)
  Receive Date: 20120511
  Receipt Date: 20120504
  Transmission Date: 20120825
  Serious: Yes (Other)
  Sender: FDA-Public Use
  Company Number: US-GLAXOSMITHKLINE-A0943048A

PATIENT
  Age: 51 Year
  Sex: Female

DRUGS (6)
  1. METFORMIN HCL [Concomitant]
  2. AVANDIA [Suspect]
     Indication: DIABETES MELLITUS
     Dosage: 8MG PER DAY
     Route: 048
     Dates: start: 20070101, end: 20070430
  3. METOPROLOL TARTRATE [Concomitant]
  4. AMLODIPINE BESYLATE [Concomitant]
  5. SIMVASTATIN [Concomitant]
  6. GLIPIZIDE [Concomitant]

REACTIONS (3)
  - CORONARY ARTERY DISEASE [None]
  - CARDIAC FAILURE CONGESTIVE [None]
  - CEREBROVASCULAR ACCIDENT [None]
